FAERS Safety Report 8603548-9 (Version None)
Quarter: 2012Q3

REPORT INFORMATION
  Report Type: 
  Country: None (occurrence: None)
  Receive Date: 20120817
  Receipt Date: 20120815
  Transmission Date: 20120928
  Serious: Yes (Hospitalization)
  Sender: FDA-Public Use
  Company Number: US-ROCHE-1093886

PATIENT
  Sex: Male

DRUGS (1)
  1. XELODA [Suspect]
     Indication: OESOPHAGEAL CANCER METASTATIC
     Route: 048
     Dates: start: 20120625, end: 20120701

REACTIONS (13)
  - PYREXIA [None]
  - SKIN EXFOLIATION [None]
  - DECREASED APPETITE [None]
  - OEDEMA PERIPHERAL [None]
  - LUNG INFECTION [None]
  - PAIN IN EXTREMITY [None]
  - ORAL DISORDER [None]
  - ERYTHEMA [None]
  - WEIGHT DECREASED [None]
  - DIARRHOEA [None]
  - PNEUMONIA [None]
  - ALOPECIA [None]
  - DYSGEUSIA [None]
